FAERS Safety Report 6678042-5 (Version None)
Quarter: 2010Q2

REPORT INFORMATION
  Report Type: 
  Country: None (occurrence: None)
  Receive Date: 20100412
  Receipt Date: 20100329
  Transmission Date: 20101027
  Serious: Yes (Hospitalization, Other)
  Sender: FDA-Public Use
  Company Number: PHEH2007US14407

PATIENT
  Sex: Female

DRUGS (33)
  1. AREDIA [Suspect]
     Indication: OSTEOPOROSIS
     Dosage: 90 MG, QMO
     Dates: start: 19970101
  2. STEROIDS NOS [Concomitant]
  3. METHADONE HCL [Concomitant]
  4. DILAUDID [Concomitant]
  5. PHENERGAN ^AVENTIS PHARMA^ [Concomitant]
  6. PREDNISOLONE [Concomitant]
  7. ACCOLATE [Concomitant]
  8. ACIPHEX [Concomitant]
  9. ATARAX [Concomitant]
  10. ZETIA [Concomitant]
  11. HUMALOG [Concomitant]
  12. LANTUS [Concomitant]
  13. NORVASC [Concomitant]
  14. CARAFATE [Concomitant]
  15. ATIVAN [Concomitant]
  16. ZOFRAN [Concomitant]
  17. DIOVAN [Concomitant]
  18. ZYRTEC [Concomitant]
  19. DOXEPIN HCL [Concomitant]
  20. FENTANYL-100 [Concomitant]
  21. EPIPEN [Concomitant]
  22. PEPCID [Concomitant]
  23. SOLU-MEDROL [Concomitant]
  24. LYRICA [Concomitant]
     Dosage: 40 MG, TID
     Route: 048
  25. HEPARIN [Concomitant]
  26. FAMOTIDINE [Concomitant]
     Dosage: 80 MG, BID
     Route: 048
  27. ELAVIL [Concomitant]
  28. AMYLASE [Concomitant]
  29. LIPASE [Concomitant]
  30. PROTEASE [Concomitant]
  31. FLAGYL [Concomitant]
  32. DURAGESIC-100 [Concomitant]
  33. NORCO [Concomitant]

REACTIONS (82)
  - ABDOMINAL PAIN [None]
  - AMNESIA [None]
  - ANAPHYLACTIC REACTION [None]
  - ANGIOMYOLIPOMA [None]
  - ANHEDONIA [None]
  - ANXIETY [None]
  - ARTHRALGIA [None]
  - ASTHENIA [None]
  - BACK PAIN [None]
  - BONE DEBRIDEMENT [None]
  - BONE DISORDER [None]
  - BONE LESION [None]
  - CHEST PAIN [None]
  - CHOKING [None]
  - CONJUNCTIVAL HAEMORRHAGE [None]
  - COUGH [None]
  - DEAFNESS [None]
  - DECREASED APPETITE [None]
  - DENTAL CARIES [None]
  - DENTAL PROSTHESIS PLACEMENT [None]
  - DEPRESSION [None]
  - DIABETES MELLITUS INADEQUATE CONTROL [None]
  - DIZZINESS [None]
  - DRY MOUTH [None]
  - DYSPEPSIA [None]
  - DYSPHAGIA [None]
  - DYSPNOEA [None]
  - EYELID OEDEMA [None]
  - FALL [None]
  - FUNGAL INFECTION [None]
  - GINGIVAL ERYTHEMA [None]
  - GINGIVAL OEDEMA [None]
  - GINGIVAL PAIN [None]
  - GINGIVAL ULCERATION [None]
  - GINGIVITIS [None]
  - HAEMANGIOMA [None]
  - HAEMORRHAGE [None]
  - HEADACHE [None]
  - HEPATIC CYST [None]
  - HEPATIC STEATOSIS [None]
  - HIATUS HERNIA [None]
  - HYPERBARIC OXYGEN THERAPY [None]
  - HYPERGLYCAEMIA [None]
  - HYPERLIPIDAEMIA [None]
  - HYPERSENSITIVITY [None]
  - HYPOPNOEA [None]
  - IMPAIRED HEALING [None]
  - INJURY [None]
  - INSOMNIA [None]
  - LENTIGO [None]
  - LIP ULCERATION [None]
  - MASTOCYTOSIS [None]
  - MUSCULAR WEAKNESS [None]
  - MYALGIA [None]
  - NASAL CONGESTION [None]
  - NAUSEA [None]
  - NEPHROLITHIASIS [None]
  - NIGHT SWEATS [None]
  - OESOPHAGITIS [None]
  - ORAL HERPES [None]
  - OSTEONECROSIS [None]
  - PAIN [None]
  - PAIN IN JAW [None]
  - PALPITATIONS [None]
  - POOR DENTAL CONDITION [None]
  - PRIMARY SEQUESTRUM [None]
  - PYELONEPHRITIS [None]
  - PYREXIA [None]
  - RESTLESS LEGS SYNDROME [None]
  - SEPSIS [None]
  - SLEEP APNOEA SYNDROME [None]
  - SNORING [None]
  - SOMNOLENCE [None]
  - SWELLING [None]
  - TOOTH EXTRACTION [None]
  - URINARY RETENTION [None]
  - URINARY TRACT INFECTION [None]
  - VENTRICULAR EXTRASYSTOLES [None]
  - VISUAL ACUITY REDUCED [None]
  - VOMITING [None]
  - WEIGHT DECREASED [None]
  - WHEELCHAIR USER [None]
